FAERS Safety Report 5722463-1 (Version None)
Quarter: 2008Q2

REPORT INFORMATION
  Report Type: 
  Country: None (occurrence: None)
  Receive Date: 20080429
  Receipt Date: 20070620
  Transmission Date: 20081010
  Serious: No
  Sender: FDA-Public Use
  Company Number: US-ASTRAZENECA-2007UW14832

PATIENT
  Age: 88 Year
  Sex: Female

DRUGS (3)
  1. NEXIUM [Suspect]
     Indication: GASTROOESOPHAGEAL REFLUX DISEASE
     Route: 048
     Dates: start: 20070618
  2. NORVASC [Concomitant]
  3. THYROID MEDICINE [Concomitant]

REACTIONS (1)
  - HAEMORRHOIDAL HAEMORRHAGE [None]
